FAERS Safety Report 4779019-7 (Version None)
Quarter: 2005Q3

REPORT INFORMATION
  Report Type: 
  Country: None (occurrence: None)
  Receive Date: 20050923
  Receipt Date: 20050913
  Transmission Date: 20060218
  Serious: Yes (Death, Hospitalization)
  Sender: FDA-Public Use
  Company Number: 2005115946

PATIENT
  Sex: Female

DRUGS (3)
  1. FLUCONAZOLE [Suspect]
     Indication: CANDIDIASIS
     Dosage: 800 MG (100 MG,); 400 MG
     Dates: start: 20050801, end: 20050801
  2. FLUCONAZOLE [Suspect]
     Indication: CANDIDIASIS
     Dosage: 800 MG (100 MG,); 400 MG
     Dates: start: 20050801, end: 20050801
  3. RIFAMPICIN [Concomitant]

REACTIONS (1)
  - PANCYTOPENIA [None]
